FAERS Safety Report 4386224-0 (Version None)
Quarter: 2004Q2

REPORT INFORMATION
  Report Type: 
  Country: None (occurrence: None)
  Receive Date: 20040623
  Receipt Date: 20040610
  Transmission Date: 20050107
  Serious: Yes (Hospitalization)
  Sender: FDA-Public Use
  Company Number: 2004SE03086

PATIENT
  Sex: Male

DRUGS (2)
  1. CASODEX [Suspect]
     Indication: PROSTATE CANCER
     Dosage: 50 MG DAILY PO
     Route: 048
     Dates: start: 20040101
  2. GLYBURIDE [Concomitant]

REACTIONS (5)
  - BONE MARROW DEPRESSION [None]
  - CARDIAC FAILURE [None]
  - HAEMATURIA [None]
  - ORCHIDECTOMY [None]
  - RENAL IMPAIRMENT [None]
